FAERS Safety Report 17235364 (Version 5)
Quarter: 2021Q2

REPORT INFORMATION
  Report Type: Other
  Country: JP (occurrence: JP)
  Receive Date: 20200106
  Receipt Date: 20210412
  Transmission Date: 20210716
  Serious: Yes (Hospitalization)
  Sender: FDA-Public Use
  Company Number: JP-ROCHE-2497029

PATIENT
  Age: 73 Year
  Sex: Female
  Weight: 61 kg

DRUGS (10)
  1. SENNOSIDE [Concomitant]
     Active Substance: SENNOSIDES
     Dosage: AFTER THE BREAKFAST AND SUPPER
     Route: 048
  2. NEXIUM [Suspect]
     Active Substance: ESOMEPRAZOLE MAGNESIUM
     Indication: PRODUCT USED FOR UNKNOWN INDICATION
     Dosage: AFTER THE BREAKFAST
     Route: 048
     Dates: start: 20180123, end: 20191205
  3. AMLODIPINE [Concomitant]
     Active Substance: AMLODIPINE BESYLATE
     Dosage: AFTER THE BREAKFAST
     Route: 048
     Dates: start: 20180205
  4. PREDNISOLONE. [Suspect]
     Active Substance: PREDNISOLONE
     Indication: PRODUCT USED FOR UNKNOWN INDICATION
     Dosage: DOSAGE IS UNCERTAIN.
     Route: 048
     Dates: start: 20180131
  5. PREDNISOLONE. [Suspect]
     Active Substance: PREDNISOLONE
     Dosage: DOSAGE IS UNCERTAIN.
     Route: 048
     Dates: start: 20180723
  6. PREDNISOLONE. [Suspect]
     Active Substance: PREDNISOLONE
     Dosage: AFTER THE BREAKFAST
     Route: 048
  7. MICARDIS [Suspect]
     Active Substance: TELMISARTAN
     Indication: PRODUCT USED FOR UNKNOWN INDICATION
     Dosage: AFTER THE SUPPER
     Route: 048
     Dates: end: 20191204
  8. TOCILIZUMAB. [Suspect]
     Active Substance: TOCILIZUMAB
     Indication: GIANT CELL ARTERITIS
     Dosage: MOST RECENT DOSE PRIOR TO AE 02/DEC/2019
     Route: 058
     Dates: start: 20191202
  9. MYSLEE [Concomitant]
     Active Substance: ZOLPIDEM TARTRATE
     Dosage: BEFORE RETIRING
     Route: 048
  10. ROSUVASTATIN. [Suspect]
     Active Substance: ROSUVASTATIN
     Indication: PRODUCT USED FOR UNKNOWN INDICATION
     Dosage: AFTER THE BREAKFAST
     Route: 048
     Dates: start: 20180220, end: 20191205

REACTIONS (5)
  - Hepatic enzyme increased [Unknown]
  - Pancytopenia [Recovering/Resolving]
  - Pyrexia [Recovered/Resolved]
  - Inflammatory marker increased [Recovered/Resolved]
  - White blood cell count decreased [Not Recovered/Not Resolved]

NARRATIVE: CASE EVENT DATE: 201912
